FAERS Safety Report 4391067-8 (Version None)
Quarter: 2004Q2

REPORT INFORMATION
  Report Type: 
  Country: None (occurrence: None)
  Receive Date: 20040625
  Receipt Date: 20040615
  Transmission Date: 20050107
  Serious: Yes (Hospitalization)
  Sender: FDA-Public Use
  Company Number: 200410440BCA

PATIENT
  Age: 18 Year
  Sex: Female
  Weight: 99.5 kg

DRUGS (1)
  1. GAMUNEX [Suspect]
     Indication: IDIOPATHIC THROMBOCYTOPENIC PURPURA
     Dosage: 20 G, QD, INTRAVENOUS
     Route: 042
     Dates: start: 20040510, end: 20040511

REACTIONS (4)
  - DIZZINESS [None]
  - HEADACHE [None]
  - MUSCULOSKELETAL STIFFNESS [None]
  - SINUSITIS [None]
